FAERS Safety Report 14556842 (Version 3)
Quarter: 2020Q4

REPORT INFORMATION
  Report Type: Spontaneous
  Country: US (occurrence: US)
  Receive Date: 20180221
  Receipt Date: 20201123
  Transmission Date: 20210113
  Serious: Yes (Death, Hospitalization, Other)
  Sender: FDA-Public Use
  Company Number: US-AUROBINDO-AUR-APL-2018-005546

PATIENT
  Age: 15 Month
  Sex: Male

DRUGS (15)
  1. TACROLIMUS. [Suspect]
     Active Substance: TACROLIMUS
     Indication: IMMUNOSUPPRESSION
     Dosage: UNK, INITIATED POSTOPERATIVE DAY 1 TO ACHIEVE TROUGH LEVELS OF 10?12 NG/ML
     Route: 048
  2. FLUOROURACIL. [Concomitant]
     Active Substance: FLUOROURACIL
     Indication: HEPATOBLASTOMA
     Dosage: UNK , CYCLICAL (6 CYCLES)
     Route: 065
  3. GANCICLOVIR. [Concomitant]
     Active Substance: GANCICLOVIR
     Indication: PROPHYLAXIS
     Dosage: UNK
     Route: 065
  4. PREDNISONE. [Suspect]
     Active Substance: PREDNISONE
     Dosage: 0.3 MILLIGRAM/KILOGRAM
     Route: 048
  5. PREDNISONE. [Suspect]
     Active Substance: PREDNISONE
     Dosage: 0.3 MILLIGRAM/KILOGRAM
     Route: 048
  6. PREDNISONE. [Suspect]
     Active Substance: PREDNISONE
     Dosage: 0.1 MILLIGRAM/KILOGRAM
     Route: 048
  7. PREDNISONE. [Suspect]
     Active Substance: PREDNISONE
     Dosage: 0.1 MILLIGRAM/KILOGRAM
     Route: 048
  8. PREDNISONE. [Suspect]
     Active Substance: PREDNISONE
     Dosage: 0.1 MILLIGRAM/KILOGRAM
     Route: 048
  9. METHYLPREDNISOLONE. [Suspect]
     Active Substance: METHYLPREDNISOLONE
     Indication: IMMUNOSUPPRESSION
     Dosage: UNK
     Route: 065
  10. TACROLIMUS. [Suspect]
     Active Substance: TACROLIMUS
     Dosage: UNK, TACROLIMUS DOSE REDUCED TO ACHIEVE A TROUGH OF 3 TO 5 NG/ML
     Route: 048
  11. METHYLPREDNISOLONE. [Suspect]
     Active Substance: METHYLPREDNISOLONE
     Dosage: UNK, INITIATED INTRAOPERATIVELY
     Route: 065
  12. TACROLIMUS. [Suspect]
     Active Substance: TACROLIMUS
     Dosage: UNK, INITIATED POSTOPERATIVE DAY 1 TO ACHIEVE TROUGH LEVELS OF 10?12 NG/ML
     Route: 048
  13. VINCRISTINE [Concomitant]
     Active Substance: VINCRISTINE
     Indication: HEPATOBLASTOMA
     Dosage: UNK, CYCLICAL (6 CYCLES)
     Route: 065
  14. CISPLATIN. [Concomitant]
     Active Substance: CISPLATIN
     Indication: HEPATOBLASTOMA
     Dosage: UNK, CYCLICAL (6 CYCLES)
     Route: 065
  15. PREDNISONE. [Suspect]
     Active Substance: PREDNISONE
     Indication: IMMUNOSUPPRESSION
     Dosage: 0.3 MILLIGRAM/KILOGRAM, DAILY
     Route: 048

REACTIONS (2)
  - Post transplant lymphoproliferative disorder [Fatal]
  - Epstein-Barr viraemia [Fatal]
